FAERS Safety Report 7796632-3 (Version None)
Quarter: 2011Q4

REPORT INFORMATION
  Report Type: 
  Country: None (occurrence: None)
  Receive Date: 20111005
  Receipt Date: 20110610
  Transmission Date: 20120403
  Serious: No
  Sender: FDA-Public Use
  Company Number: US-BAYER-2011-050540

PATIENT
  Age: 65 Year
  Sex: Female

DRUGS (3)
  1. AVELOX [Suspect]
     Indication: BRONCHITIS
     Dosage: 400 MG, QD
     Route: 048
     Dates: start: 20110603
  2. SIMVASTATIN [Concomitant]
  3. DIOVAN [Concomitant]

REACTIONS (2)
  - BRONCHITIS [None]
  - DIARRHOEA [None]
